FAERS Safety Report 6038603-3 (Version None)
Quarter: 2009Q1

REPORT INFORMATION
  Report Type: 
  Country: None (occurrence: None)
  Receive Date: 20090115
  Receipt Date: 20090107
  Transmission Date: 20090719
  Serious: Yes (Hospitalization)
  Sender: FDA-Public Use
  Company Number: D0059963A

PATIENT
  Age: 33 Year
  Sex: Female
  Weight: 79 kg

DRUGS (3)
  1. ARIXTRA [Suspect]
     Indication: DEEP VEIN THROMBOSIS
     Dosage: 7.5MG PER DAY
     Route: 058
     Dates: start: 20080117, end: 20081002
  2. ASPIRIN [Suspect]
     Dosage: 500MG PER DAY
     Route: 048
     Dates: start: 20080728
  3. HEPARIN [Concomitant]
     Indication: DEEP VEIN THROMBOSIS
     Route: 065
     Dates: start: 20080101, end: 20080101

REACTIONS (6)
  - AUTOIMMUNE THYROIDITIS [None]
  - DELIVERY [None]
  - DRUG EXPOSURE DURING PREGNANCY [None]
  - ESSENTIAL THROMBOCYTHAEMIA [None]
  - MUSCLE HAEMORRHAGE [None]
  - NERVE INJURY [None]
